FAERS Safety Report 25499884 (Version 1)
Quarter: 2025Q2

REPORT INFORMATION
  Report Type: Spontaneous
  Country: US (occurrence: None)
  Receive Date: 20250630
  Receipt Date: 20250630
  Transmission Date: 20250717
  Serious: Yes (Other)
  Sender: FDA-CTU
  Company Number: None

PATIENT
  Age: 72 Year
  Sex: Male
  Weight: 81 kg

DRUGS (6)
  1. BROMFENAC\MOXIFLOXACIN\PREDNISOLONE ACETATE [Suspect]
     Active Substance: BROMFENAC\MOXIFLOXACIN\PREDNISOLONE ACETATE
     Indication: Cataract operation
     Dosage: OTHER QUANTITY : 1 DROP(S)?FREQUENCY : 3 TIMES A DAY?
     Route: 047
     Dates: start: 20250623, end: 20250625
  2. SYNTHROID [Concomitant]
     Active Substance: LEVOTHYROXINE SODIUM
  3. CYTOMEL [Concomitant]
     Active Substance: LIOTHYRONINE SODIUM
  4. TAMSULOSIN [Concomitant]
     Active Substance: TAMSULOSIN
  5. FINASTERIDE [Concomitant]
     Active Substance: FINASTERIDE
  6. PROPRANOLOL [Concomitant]
     Active Substance: PROPRANOLOL HYDROCHLORIDE

REACTIONS (1)
  - Anxiety [None]

NARRATIVE: CASE EVENT DATE: 20250624
